FAERS Safety Report 7643717-8 (Version None)
Quarter: 2011Q3

REPORT INFORMATION
  Report Type: 
  Country: None (occurrence: None)
  Receive Date: 20110722
  Receipt Date: 20110708
  Transmission Date: 20111222
  Serious: Yes (Other)
  Sender: FDA-Public Use
  Company Number: 2011MA002938

PATIENT
  Age: 89 Year
  Sex: Female

DRUGS (13)
  1. ALPHAGAN [Concomitant]
  2. METOCLOPRAMIDE [Suspect]
     Indication: PRODUCT USED FOR UNKNOWN INDICATION
     Dosage: 10MG; QID; PO
     Route: 048
     Dates: start: 20050520, end: 20051123
  3. ASPIRIN [Concomitant]
  4. AVALIDE [Concomitant]
  5. XALATAN [Concomitant]
  6. LISINOPRIL [Concomitant]
  7. LEXAPRO [Concomitant]
  8. METAMUCIL-2 [Concomitant]
  9. VITAMIN B-12 [Concomitant]
  10. NAPROXEN (ALEVE) [Concomitant]
  11. NEXIUM [Concomitant]
  12. OXTBUTYNIN [Concomitant]
  13. KLONOPIN [Concomitant]

REACTIONS (12)
  - TARDIVE DYSKINESIA [None]
  - MUSCULAR WEAKNESS [None]
  - NAUSEA [None]
  - GAIT DISTURBANCE [None]
  - DYSKINESIA [None]
  - PARKINSONISM [None]
  - EXTRAPYRAMIDAL DISORDER [None]
  - ECONOMIC PROBLEM [None]
  - EMOTIONAL DISORDER [None]
  - FATIGUE [None]
  - TREMOR [None]
  - DYSARTHRIA [None]
